FAERS Safety Report 22664357 (Version 1)
Quarter: 2023Q2

REPORT INFORMATION
  Report Type: Spontaneous
  Country: US (occurrence: None)
  Receive Date: 20230630
  Receipt Date: 20230630
  Transmission Date: 20230721
  Serious: Yes (Other)
  Sender: FDA-Public Use
  Company Number: None

PATIENT
  Age: 63 Year
  Sex: Male

DRUGS (2)
  1. RINVOQ [Suspect]
     Active Substance: UPADACITINIB
     Indication: Colitis ulcerative
     Dosage: 30 MG ORAL??TAKE 30 MG BY MOUTH 1 (ONE) TIME EACH DAY. START AFTER COMPLETING INDUCTION THERAPY.
     Route: 048
  2. STELARA INJ 90MG/ML [Concomitant]
     Indication: Colitis ulcerative
     Route: 048

REACTIONS (3)
  - Therapy interrupted [None]
  - Product use issue [None]
  - Colitis [None]

NARRATIVE: CASE EVENT DATE: 20230515
